FAERS Safety Report 5164453-6 (Version None)
Quarter: 2006Q4

REPORT INFORMATION
  Report Type: 
  Country: None (occurrence: None)
  Receive Date: 20061205
  Receipt Date: 20061113
  Transmission Date: 20070319
  Serious: Yes (Death)
  Sender: FDA-Public Use
  Company Number: JP-BRISTOL-MYERS SQUIBB COMPANY-13579941

PATIENT
  Age: 92 Year
  Sex: Female

DRUGS (5)
  1. MAXIPIME [Suspect]
     Indication: PYREXIA
     Route: 041
     Dates: start: 20060705, end: 20060711
  2. ELEMENMIC [Concomitant]
     Route: 041
     Dates: start: 20060412, end: 20060818
  3. HUMULIN R [Concomitant]
     Route: 041
     Dates: start: 20060413, end: 20060818
  4. LASIX [Concomitant]
     Route: 042
  5. NEOPAREN [Concomitant]
     Route: 041
     Dates: start: 20060413, end: 20060818

REACTIONS (3)
  - ERYTHEMA [None]
  - FEELING HOT [None]
  - PNEUMONIA [None]
